FAERS Safety Report 21156278 (Version 3)
Quarter: 2022Q3

REPORT INFORMATION
  Report Type: Report from Study
  Country: ES (occurrence: ES)
  Receive Date: 20220801
  Receipt Date: 20220826
  Transmission Date: 20221027
  Serious: Yes (Hospitalization)
  Sender: FDA-Public Use
  Company Number: ES-PFIZER INC-PV202200011939

PATIENT
  Age: 64 Year
  Sex: Female
  Weight: 53 kg

DRUGS (15)
  1. PALBOCICLIB [Suspect]
     Active Substance: PALBOCICLIB
     Indication: Breast cancer metastatic
     Dosage: 125 MG, 1X/DAY
     Route: 048
     Dates: start: 20210730, end: 20220617
  2. INAVOLISIB [Suspect]
     Active Substance: INAVOLISIB
     Indication: Breast cancer metastatic
     Dosage: 9 MG, 1X/DAY
     Route: 048
     Dates: start: 20210730, end: 20220617
  3. INAVOLISIB [Suspect]
     Active Substance: INAVOLISIB
     Dosage: 9 MG, 1X/DAY
     Route: 048
     Dates: start: 20210730, end: 20220617
  4. FULVESTRANT [Suspect]
     Active Substance: FULVESTRANT
     Indication: Breast cancer metastatic
     Dosage: 500 MG, MONTHLY
     Route: 030
     Dates: start: 20210730, end: 20220602
  5. LIPOLASIC [Concomitant]
     Indication: Pruritus
     Dosage: 2 OTHER (1 IN 1 AS REQUIRED)
     Route: 047
     Dates: start: 20210823
  6. LIPOLASIC [Concomitant]
     Indication: Vision blurred
  7. HYLO DUAL [Concomitant]
     Indication: Pruritus
     Dosage: 1 OTHER (1 IN 1 AS REQUIRED)
     Route: 047
     Dates: start: 20210823
  8. HYLO DUAL [Concomitant]
     Indication: Vision blurred
  9. BARIMIX [Concomitant]
     Dosage: 1 IN 1 D
     Route: 048
     Dates: start: 20211125
  10. ENSURE PLUS ADVANCE [Concomitant]
     Indication: Weight decreased
     Dosage: 100 ML,1 IN 1 D
     Route: 048
     Dates: start: 20211201
  11. CARBOMER [Concomitant]
     Active Substance: CARBOMER
     Indication: Xerophthalmia
     Dosage: 2 MG, 1 IN 1 D
     Route: 047
     Dates: start: 20220309
  12. OMEPRAZOLE [Concomitant]
     Active Substance: OMEPRAZOLE
     Indication: Abdominal pain upper
     Dosage: 40 MG,1 IN 1 D
     Route: 048
     Dates: start: 20220316, end: 20220602
  13. CALCIUM CARBONATE [Concomitant]
     Active Substance: CALCIUM CARBONATE
     Indication: Pruritus
     Dosage: (600 MG,1 IN 1 D)
     Route: 048
     Dates: start: 20211125
  14. CALCIUM CARBONATE [Concomitant]
     Active Substance: CALCIUM CARBONATE
     Indication: Vision blurred
  15. DEXAMETHASONE [Concomitant]
     Active Substance: DEXAMETHASONE
     Indication: Mucosal inflammation
     Dosage: 8 MG, 3 IN 1 D
     Route: 061

REACTIONS (1)
  - Intestinal perforation [Recovered/Resolved]

NARRATIVE: CASE EVENT DATE: 20220617
